FAERS Safety Report 9156817 (Version 1)
Quarter: 2013Q1

REPORT INFORMATION
  Report Type: Spontaneous
  Country: US (occurrence: None)
  Receive Date: 20130308
  Receipt Date: 20130308
  Transmission Date: 20140127
  Serious: Yes (Hospitalization)
  Sender: FDA-Public Use
  Company Number: None

PATIENT
  Age: 69 Year
  Sex: Female
  Weight: 86.18 kg

DRUGS (1)
  1. VESICARE [Suspect]
     Indication: URINARY TRACT INFECTION
     Dates: start: 20130104, end: 20130118

REACTIONS (10)
  - Lip dry [None]
  - Dry skin [None]
  - Asthenia [None]
  - Dry skin [None]
  - Paraesthesia [None]
  - Anxiety [None]
  - Tremor [None]
  - Apparent death [None]
  - Fatigue [None]
  - Presyncope [None]
